FAERS Safety Report 4900580-3 (Version None)
Quarter: 2006Q1

REPORT INFORMATION
  Report Type: 
  Country: None (occurrence: None)
  Receive Date: 20060201
  Receipt Date: 20060125
  Transmission Date: 20060701
  Serious: Yes (Death)
  Sender: FDA-Public Use
  Company Number: USA-2006-0023422

PATIENT
  Age: 41 Year
  Sex: Male

DRUGS (5)
  1. OXYCONTIN [Suspect]
     Indication: HEADACHE
     Dosage: 20 MG, BID,
     Dates: start: 20050624
  2. LEXAPRO [Concomitant]
  3. COUMADIN [Concomitant]
  4. PAMELOR [Concomitant]
  5. KLONOPIN [Concomitant]

REACTIONS (1)
  - DEATH [None]
